FAERS Safety Report 6548964-4 (Version None)
Quarter: 2010Q1

REPORT INFORMATION
  Report Type: 
  Country: None (occurrence: None)
  Receive Date: 20100125
  Receipt Date: 20100115
  Transmission Date: 20100710
  Serious: Yes (Other)
  Sender: FDA-Public Use
  Company Number: US-TEVA-220982USA

PATIENT
  Sex: Female
  Weight: 54.071 kg

DRUGS (2)
  1. MEDROXYPROGESTERONE [Suspect]
     Indication: CONTRACEPTION
     Dosage: 150 MG, EVERY 10 TO 13 WEEKS
     Route: 030
     Dates: start: 20080827, end: 20090202
  2. MEDROXYPROGESTERONE [Suspect]
     Indication: MENSTRUAL DISCOMFORT

REACTIONS (3)
  - ABORTION SPONTANEOUS [None]
  - DRUG INEFFECTIVE [None]
  - UNINTENDED PREGNANCY [None]
